FAERS Safety Report 4643807-8 (Version None)
Quarter: 2005Q2

REPORT INFORMATION
  Report Type: 
  Country: None (occurrence: None)
  Receive Date: 20050422
  Receipt Date: 20050422
  Transmission Date: 20051028
  Serious: Yes (Other)
  Sender: FDA-Public Use
  Company Number: None

PATIENT
  Age: 81 Year
  Sex: Male
  Weight: 81.3 kg

DRUGS (13)
  1. ABILIFY [Suspect]
  2. DIPHENHYDRAMINE HCL [Concomitant]
  3. LORAZEPAM [Concomitant]
  4. DIPHENHYDRAMINE ELIXIR [Concomitant]
  5. SODIUM FLUORIDE [Concomitant]
  6. OMEPRAZOLE [Concomitant]
  7. KETOROLAC TROMETHAMINE [Concomitant]
  8. DORZOLAMIDE 2%/TIMOLOL 0.5% [Concomitant]
  9. DOCUSATE SODIUM [Concomitant]
  10. BRIMONIDINE [Concomitant]
  11. MILK OF MAGNESIA [Concomitant]
  12. ACETAMINOPHEN [Concomitant]
  13. LORAZEPAM [Concomitant]

REACTIONS (1)
  - DYSTONIA [None]
